FAERS Safety Report 13995276 (Version 3)
Quarter: 2017Q4

REPORT INFORMATION
  Report Type: Spontaneous
  Country: DE (occurrence: DE)
  Receive Date: 20170921
  Receipt Date: 20171206
  Transmission Date: 20180321
  Serious: Yes (Hospitalization, Other)
  Sender: FDA-Public Use
  Company Number: DE-SUN PHARMACEUTICAL INDUSTRIES LTD-2017RR-150295

PATIENT
  Age: 65 Year
  Sex: Female

DRUGS (3)
  1. CLARITHROMYCIN BASICS 500MG FILMTABLETTEN [Suspect]
     Active Substance: CLARITHROMYCIN
     Indication: INFLUENZA
     Dosage: 1-0-1
     Route: 048
     Dates: start: 20170823, end: 20170825
  2. ORTHOMOL IMMUN PRO [Concomitant]
     Indication: PRODUCT USED FOR UNKNOWN INDICATION
     Dosage: UNK
     Route: 065
  3. SINUPRET FORTE [Concomitant]
     Active Substance: HERBALS
     Indication: PRODUCT USED FOR UNKNOWN INDICATION
     Dosage: UNK
     Route: 065

REACTIONS (10)
  - Hyperhidrosis [Unknown]
  - Dizziness [Unknown]
  - Dysgeusia [Unknown]
  - Palpitations [Unknown]
  - Decreased appetite [Unknown]
  - Nausea [Unknown]
  - Diarrhoea [Unknown]
  - Dehydration [Unknown]
  - Arrhythmia [Unknown]
  - Tremor [Unknown]

NARRATIVE: CASE EVENT DATE: 20170823
